FAERS Safety Report 8737868 (Version 4)
Quarter: 2013Q4

REPORT INFORMATION
  Report Type: Spontaneous
  Country: JP (occurrence: JP)
  Receive Date: 20120823
  Receipt Date: 20131031
  Transmission Date: 20140711
  Serious: Yes (Death, Hospitalization)
  Sender: FDA-Public Use
  Company Number: JP-MERCK-1208JPN005465

PATIENT
  Age: 79 Year
  Sex: Female
  Weight: 63 kg

DRUGS (9)
  1. GASTER D [Suspect]
     Indication: HEPATIC FAILURE
     Dosage: 20 MG, BID
     Route: 048
     Dates: end: 20120807
  2. LASIX (FUROSEMIDE) [Concomitant]
     Dosage: UNK
     Dates: end: 20120807
  3. AMINOLEBAN EN [Concomitant]
     Dosage: UNK
     Dates: end: 20120807
  4. PROHEPARUM [Concomitant]
     Dosage: UNK
     Dates: end: 20120807
  5. KANAMYCIN [Concomitant]
     Dosage: UNK
     Dates: end: 20120807
  6. ALDACTONE A [Concomitant]
     Dosage: UNK
     Dates: end: 20120807
  7. SHAKUYAKU-KANZO-TO [Concomitant]
     Dosage: UNK
     Dates: end: 20120807
  8. MAGMITT [Concomitant]
     Dosage: UNK
     Dates: end: 20120807
  9. HUSTAZOL [Concomitant]
     Dosage: UNK
     Dates: end: 20120807

REACTIONS (1)
  - Electrocardiogram QT prolonged [Fatal]
